FAERS Safety Report 7352372-6 (Version None)
Quarter: 2011Q1

REPORT INFORMATION
  Report Type: 
  Country: None (occurrence: None)
  Receive Date: 20110315
  Receipt Date: 20110307
  Transmission Date: 20110831
  Serious: Yes (Death, Other)
  Sender: FDA-Public Use
  Company Number: JP-GENZYME-THYM-1002349

PATIENT
  Age: 30 Year
  Sex: Male

DRUGS (6)
  1. BLOOD TRANSFUSION, AUXILIARY PRODUCTS [Concomitant]
     Indication: APLASTIC ANAEMIA
  2. THYMOGLOBULIN [Suspect]
     Indication: APLASTIC ANAEMIA
     Route: 042
  3. NEUPOGEN [Concomitant]
     Indication: APLASTIC ANAEMIA
  4. IMMUNOSUPPRESSIVE AGENTS [Concomitant]
     Indication: APLASTIC ANAEMIA
  5. ANABOLIC STEROIDS [Concomitant]
     Indication: APLASTIC ANAEMIA
  6. CORTICOSTEROIDS [Concomitant]
     Indication: APLASTIC ANAEMIA

REACTIONS (4)
  - TYPE 2 DIABETES MELLITUS [None]
  - HAEMOCHROMATOSIS [None]
  - PULMONARY HAEMORRHAGE [None]
  - CEREBRAL HAEMORRHAGE [None]
